FAERS Safety Report 6446241-3 (Version None)
Quarter: 2009Q4

REPORT INFORMATION
  Report Type: 
  Country: None (occurrence: None)
  Receive Date: 20091119
  Receipt Date: 20091109
  Transmission Date: 20100525
  Serious: Yes (Life-Threatening, Hospitalization)
  Sender: FDA-Public Use
  Company Number: FR-ROCHE-657678

PATIENT
  Age: 75 Year
  Sex: Female
  Weight: 58 kg

DRUGS (8)
  1. XELODA [Suspect]
     Route: 048
     Dates: start: 20090301, end: 20090801
  2. XELODA [Suspect]
     Route: 048
     Dates: start: 20090901
  3. PYOSTACINE [Concomitant]
     Indication: COUGH
     Dosage: OTHER INDICATION: BRONCHITIS.
     Route: 048
     Dates: start: 20090916, end: 20090918
  4. PNEUMOREL [Concomitant]
     Indication: COUGH
     Dosage: OTHER INDICATION: BRONCHITIS.
     Route: 048
     Dates: start: 20090916, end: 20090918
  5. LOXEN [Concomitant]
     Indication: HYPERTENSION
  6. KARDEGIC [Concomitant]
     Indication: HYPERTENSION
  7. ZANIDIP [Concomitant]
     Indication: HYPERTENSION
  8. AREDIA [Concomitant]

REACTIONS (6)
  - COMA [None]
  - CONVULSION [None]
  - HYPOKALAEMIA [None]
  - HYPONATRAEMIA [None]
  - INAPPROPRIATE ANTIDIURETIC HORMONE SECRETION [None]
  - PALMAR-PLANTAR ERYTHRODYSAESTHESIA SYNDROME [None]
